FAERS Safety Report 9015551 (Version 1)
Quarter: 2013Q1

REPORT INFORMATION
  Report Type: Spontaneous
  Country: US (occurrence: None)
  Receive Date: 20130110
  Receipt Date: 20130110
  Transmission Date: 20140127
  Serious: No
  Sender: FDA-Public Use
  Company Number: None

PATIENT
  Age: 63 Year
  Sex: Male

DRUGS (4)
  1. VEMURAFENIB [Suspect]
  2. CARVEDILOL [Concomitant]
  3. ENALAPRIL MALEATE [Concomitant]
  4. IBUPROFEN [Concomitant]

REACTIONS (5)
  - Rash [None]
  - Hypotension [None]
  - Blood creatinine increased [None]
  - Hypoperfusion [None]
  - Renal disorder [None]
